FAERS Safety Report 8262584-5 (Version None)
Quarter: 2012Q2

REPORT INFORMATION
  Report Type: 
  Country: None (occurrence: None)
  Receive Date: 20120405
  Receipt Date: 20120323
  Transmission Date: 20120825
  Serious: Yes (Life-Threatening, Hospitalization)
  Sender: FDA-Public Use
  Company Number: DK-TEVA-321848ISR

PATIENT
  Sex: Male

DRUGS (7)
  1. METFORMIN HCL [Suspect]
     Indication: TYPE 2 DIABETES MELLITUS
     Dosage: NOT STATED
     Route: 065
  2. ENALAPRIL MALEATE [Concomitant]
  3. UNIKALK BASIC [Concomitant]
  4. VITAMIN B-12 [Interacting]
     Indication: VITAMIN B12 DEFICIENCY
     Dosage: 1MG/ML EVERY 3RD MONTH
     Route: 065
     Dates: start: 20110101
  5. ASPIRIN [Concomitant]
  6. VENLAFAXINE [Concomitant]
  7. SIMVASTATIN [Concomitant]

REACTIONS (4)
  - DRUG INTERACTION [None]
  - DEPRESSION [None]
  - SUICIDE ATTEMPT [None]
  - TREMOR [None]
